FAERS Safety Report 15609177 (Version 1)
Quarter: 2018Q4

REPORT INFORMATION
  Report Type: Spontaneous
  Country: None (occurrence: FR)
  Receive Date: 20181112
  Receipt Date: 20181112
  Transmission Date: 20190205
  Serious: Yes (Hospitalization)
  Sender: FDA-Public Use
  Company Number: FR-LABORATOIRE HRA PHARMA-2058746

PATIENT
  Age: 56 Year
  Sex: Female
  Weight: 50 kg

DRUGS (6)
  1. HYDROCORTISONE. [Concomitant]
     Active Substance: HYDROCORTISONE
  2. LYSODREN [Suspect]
     Active Substance: MITOTANE
     Indication: CUSHING^S SYNDROME
     Route: 048
     Dates: end: 20180914
  3. METYRAPONE [Concomitant]
     Active Substance: METYRAPONE
  4. OXAZEPAM. [Suspect]
     Active Substance: OXAZEPAM
     Dates: start: 20180904, end: 20180915
  5. VENLAFAXINE [Concomitant]
     Active Substance: VENLAFAXINE HYDROCHLORIDE
  6. DEPAKOTE [Suspect]
     Active Substance: DIVALPROEX SODIUM
     Dates: start: 20180911, end: 20180915

REACTIONS (4)
  - Hyperammonaemic encephalopathy [Recovered/Resolved]
  - Disturbance in attention [Recovered/Resolved]
  - Sedation complication [Recovered/Resolved]
  - Somnolence [Recovered/Resolved]

NARRATIVE: CASE EVENT DATE: 20180906
